FAERS Safety Report 9631086 (Version 1)
Quarter: 2013Q4

REPORT INFORMATION
  Report Type: Spontaneous
  Country: GB (occurrence: None)
  Receive Date: 20131015
  Receipt Date: 20131015
  Transmission Date: 20140711
  Serious: Yes (Other)
  Sender: FDA-Public Use
  Company Number: 2013-003133

PATIENT
  Age: 70 Year
  Sex: Male

DRUGS (7)
  1. ACTONEL [Suspect]
     Dosage: ONE DOSE ONLY
     Route: 048
     Dates: start: 20130804, end: 20130804
  2. ALENDRONIC ACID (ALENDRONIC ACID) [Suspect]
  3. ADCAL [Concomitant]
  4. BENDROFLUMETHIAZIDE [Concomitant]
  5. GLUCOSAMINE SULPHATE [Concomitant]
  6. PARACETAMOL [Concomitant]
  7. PREDNISOLONE [Concomitant]

REACTIONS (7)
  - Conjunctivitis [None]
  - Eye disorder [None]
  - Melanocytic naevus [None]
  - Oral pain [None]
  - Oral mucosal exfoliation [None]
  - Scab [None]
  - Erythema [None]
